FAERS Safety Report 10087099 (Version 2)
Quarter: 2014Q2

REPORT INFORMATION
  Report Type: Spontaneous
  Country: DE (occurrence: DE)
  Receive Date: 20140418
  Receipt Date: 20140529
  Transmission Date: 20141212
  Serious: Yes (Hospitalization, Other)
  Sender: FDA-Public Use
  Company Number: DE-ALLERGAN-1407210US

PATIENT
  Age: 70 Year
  Sex: Male

DRUGS (1)
  1. VISTAGAN LIQUIFILM 0,5% AUGENTROPFEN [Suspect]
     Indication: PRODUCT USED FOR UNKNOWN INDICATION
     Dosage: UNK
     Dates: start: 1991, end: 199403

REACTIONS (18)
  - Cardiac disorder [Unknown]
  - Pulmonary hypertension [Unknown]
  - Pulmonary embolism [Unknown]
  - Respiratory alkalosis [Unknown]
  - Pulmonary hypertension [Unknown]
  - Coronary artery disease [Unknown]
  - Angina pectoris [Unknown]
  - Conduction disorder [Unknown]
  - Hypertension [Unknown]
  - Tricuspid valve incompetence [Unknown]
  - Prostatic adenoma [Unknown]
  - Varicose vein [Unknown]
  - Hypoxia [Unknown]
  - Cor pulmonale [Unknown]
  - Respiratory failure [Unknown]
  - Cardiac failure [Unknown]
  - Dyspnoea [Unknown]
  - Depression [Unknown]
